FAERS Safety Report 6827144-9 (Version None)
Quarter: 2010Q3

REPORT INFORMATION
  Report Type: 
  Country: None (occurrence: None)
  Receive Date: 20100709
  Receipt Date: 20100630
  Transmission Date: 20110219
  Serious: Yes (Other)
  Sender: FDA-Public Use
  Company Number: FR-BRISTOL-MYERS SQUIBB COMPANY-15182033

PATIENT
  Age: 19 Year
  Sex: Male

DRUGS (3)
  1. ARIPIPRAZOLE [Suspect]
     Indication: SCHIZOPHRENIA
  2. AMISULPRIDE [Concomitant]
     Indication: SCHIZOPHRENIA
  3. DIAZEPAM [Concomitant]
     Indication: SCHIZOPHRENIA

REACTIONS (2)
  - CRIME [None]
  - PATHOLOGICAL GAMBLING [None]
